FAERS Safety Report 15518424 (Version 1)
Quarter: 2018Q4

REPORT INFORMATION
  Report Type: Spontaneous
  Country: US (occurrence: US)
  Receive Date: 20181017
  Receipt Date: 20181017
  Transmission Date: 20190205
  Serious: Yes (Life-Threatening, Hospitalization, Other)
  Sender: FDA-Public Use
  Company Number: US-PFIZER INC-2018423393

PATIENT
  Age: 23 Year
  Sex: Female
  Weight: 135 kg

DRUGS (6)
  1. CYCLOBENZAPRINE. [Concomitant]
     Active Substance: CYCLOBENZAPRINE
     Indication: BACK PAIN
     Dosage: 5 MG, AS NEEDED (1 TABLET TAKEN BY MOUTH ONCE DAILY AS NEEDED)
     Route: 048
     Dates: start: 2018
  2. RAPAMUNE [Suspect]
     Active Substance: SIROLIMUS
     Indication: LYMPHOEDEMA
  3. RAPAMUNE [Suspect]
     Active Substance: SIROLIMUS
     Indication: GORHAM^S DISEASE
     Dosage: UNK, DAILY (1MG TABLET: 1 TO 2 TABLETS TAKEN BY MOUTH DAILY)
     Route: 048
     Dates: start: 201511, end: 20180915
  4. CLEOCIN [CLINDAMYCIN HYDROCHLORIDE] [Concomitant]
     Indication: PNEUMONIA
     Dosage: 300 MG, 4X/DAY (EVERY 6 HOURS FOR 10 DAYS)
     Route: 048
     Dates: start: 2018
  5. NORCO [Concomitant]
     Active Substance: ACETAMINOPHEN\HYDROCODONE BITARTRATE
     Indication: BACK PAIN
     Dosage: 1 DF, AS NEEDED (HYDROCODONE BITARTRATE-10 MG, PARACETAMO-325 MGL) DAILY
     Route: 048
     Dates: start: 201703
  6. ATIVAN [Concomitant]
     Active Substance: LORAZEPAM
     Indication: ANXIETY
     Dosage: 0.5 MG, AS NEEDED (1 TABLET TAKEN BY MOUTH ONCE DAILY AS NEEDED)
     Route: 048
     Dates: start: 2016

REACTIONS (5)
  - Pneumonia [Unknown]
  - Plasmablastic lymphoma [Recovering/Resolving]
  - Hypotension [Unknown]
  - Product use in unapproved indication [Unknown]
  - Septic shock [Unknown]

NARRATIVE: CASE EVENT DATE: 20180924
